FAERS Safety Report 10424552 (Version 1)
Quarter: 2014Q3

REPORT INFORMATION
  Report Type: Spontaneous
  Country: FR (occurrence: FR)
  Receive Date: 20140902
  Receipt Date: 20140902
  Transmission Date: 20150326
  Serious: Yes (Other)
  Sender: FDA-Public Use
  Company Number: FR-BAYER-2014-126975

PATIENT
  Age: 30 Year
  Sex: Female

DRUGS (11)
  1. LOVENOX [Concomitant]
     Active Substance: ENOXAPARIN SODIUM
  2. SKENAN [Concomitant]
     Active Substance: MORPHINE SULFATE
  3. SULFAMETHOXAZOLE [Suspect]
     Active Substance: SULFAMETHOXAZOLE
     Indication: OSTEITIS
     Dosage: 1 DF, BID
     Route: 048
     Dates: start: 20140604, end: 20140714
  4. TAHOR [Concomitant]
     Active Substance: ATORVASTATIN CALCIUM
  5. INSULIN [Concomitant]
     Active Substance: INSULIN NOS
  6. LAMICTAL [Concomitant]
     Active Substance: LAMOTRIGINE
  7. DOLIPRANE [Concomitant]
     Active Substance: ACETAMINOPHEN
  8. LYRICA [Concomitant]
     Active Substance: PREGABALIN
  9. KARDEGIC [Concomitant]
     Active Substance: ASPIRIN LYSINE
  10. ACTISKENAN [Concomitant]
     Active Substance: MORPHINE SULFATE
  11. CIFLOX [Suspect]
     Active Substance: CIPROFLOXACIN
     Indication: OSTEITIS
     Dosage: 500 MG, BID
     Route: 048
     Dates: start: 20140604, end: 20140714

REACTIONS (1)
  - Drug reaction with eosinophilia and systemic symptoms [Recovered/Resolved]

NARRATIVE: CASE EVENT DATE: 20140714
